FAERS Safety Report 14557884 (Version 1)
Quarter: 2018Q1

REPORT INFORMATION
  Report Type: Spontaneous
  Country: US (occurrence: US)
  Receive Date: 20180221
  Receipt Date: 20180221
  Transmission Date: 20180509
  Serious: Yes (Other)
  Sender: FDA-Public Use
  Company Number: US-WEST-WARD PHARMACEUTICALS CORP.-US-H14001-18-01066

PATIENT
  Age: 62 Year
  Sex: Male

DRUGS (13)
  1. IR MORPHINE [Suspect]
     Active Substance: MORPHINE
     Route: 048
  2. HYDROMORPHONE [Suspect]
     Active Substance: HYDROMORPHONE
     Route: 042
  3. HYDROMORPHONE [Suspect]
     Active Substance: HYDROMORPHONE
     Route: 042
  4. ER MORPHINE [Suspect]
     Active Substance: MORPHINE
     Route: 048
  5. DICLOFENAC [Concomitant]
     Active Substance: DICLOFENAC
     Indication: PAIN
     Route: 048
  6. OXYGEN THERAPY [Concomitant]
     Active Substance: OXYGEN
     Indication: PRODUCT USED FOR UNKNOWN INDICATION
     Route: 065
  7. HYDROMORPHONE [Suspect]
     Active Substance: HYDROMORPHONE
     Route: 042
  8. HYDROMORPHONE [Suspect]
     Active Substance: HYDROMORPHONE
     Indication: PAIN
     Route: 065
  9. ER MORPHINE [Suspect]
     Active Substance: MORPHINE
     Indication: PAIN
     Route: 048
  10. ER MORPHINE [Suspect]
     Active Substance: MORPHINE
     Route: 048
  11. HYDROMORPHONE [Suspect]
     Active Substance: HYDROMORPHONE
     Route: 042
  12. IR MORPHINE [Suspect]
     Active Substance: MORPHINE
     Indication: PAIN
     Route: 048
  13. HYDROCODONE/ACETAMINOPHEN [Suspect]
     Active Substance: ACETAMINOPHEN\HYDROCODONE
     Indication: PAIN
     Route: 065

REACTIONS (12)
  - Inappropriate schedule of drug administration [Unknown]
  - Odynophagia [None]
  - Depressed level of consciousness [Unknown]
  - Myoclonus [Unknown]
  - Pain [Unknown]
  - Dysphagia [None]
  - Discomfort [Unknown]
  - Nasal congestion [None]
  - Hyperhidrosis [Unknown]
  - Chills [None]
  - Neck pain [None]
  - Lymphadenopathy [None]
